FAERS Safety Report 23517830 (Version 1)
Quarter: 2024Q1

REPORT INFORMATION
  Report Type: Spontaneous
  Country: US (occurrence: None)
  Receive Date: 20240212
  Receipt Date: 20240212
  Transmission Date: 20240410
  Serious: Yes (Death)
  Sender: FDA-Public Use
  Company Number: None

PATIENT
  Age: 66 Year
  Sex: Female
  Weight: 98.9 kg

DRUGS (2)
  1. TACROLIMUS [Suspect]
     Active Substance: TACROLIMUS
     Indication: Lung transplant
     Dosage: OTHER QUANTITY : 1 CAPSULE;?FREQUENCY : TWICE A DAY;?
     Route: 048
     Dates: start: 20220225, end: 20240124
  2. TACROLIMUS [Suspect]
     Active Substance: TACROLIMUS
     Indication: Lung transplant
     Dosage: OTHER QUANTITY : 2 CAPSULES;?FREQUENCY : TWICE A DAY;?
     Route: 048
     Dates: start: 20220225, end: 20240124

REACTIONS (1)
  - Death [None]

NARRATIVE: CASE EVENT DATE: 20240212
